FAERS Safety Report 7754755-9 (Version None)
Quarter: 2011Q3

REPORT INFORMATION
  Report Type: 
  Country: None (occurrence: None)
  Receive Date: 20110916
  Receipt Date: 20110912
  Transmission Date: 20111222
  Serious: Yes (Hospitalization)
  Sender: FDA-Public Use
  Company Number: GB-AMGEN-GBRCT2011037310

PATIENT
  Age: 36 Year
  Sex: Male

DRUGS (16)
  1. EPIRUBICIN [Concomitant]
     Indication: GASTRIC CANCER
     Dosage: UNK
     Dates: start: 20110714
  2. CAPECITABINE [Concomitant]
     Indication: GASTRIC CANCER
     Dosage: UNK
     Dates: start: 20110714, end: 20110719
  3. DIPROBASE [Concomitant]
     Indication: PROPHYLAXIS
     Dosage: UNK
     Route: 061
     Dates: start: 20110714
  4. LYMECYCLINE [Concomitant]
     Indication: PROPHYLAXIS
     Dosage: 408 MG, QD
     Route: 048
     Dates: start: 20110714
  5. ACETAMINOPHEN AND CODEINE PHOSPHATE [Concomitant]
     Indication: INFECTION
     Dosage: UNK
     Dates: start: 20110805
  6. POLYETHYLENE GLYCOL [Concomitant]
     Indication: HYPOKALAEMIA
     Dosage: UNK UNK, BID
     Dates: start: 20110720, end: 20110730
  7. PANITUMUMAB [Suspect]
     Indication: GASTRIC CANCER
     Dosage: UNK
     Dates: start: 20110714
  8. OMEPRAZOLE [Concomitant]
     Dosage: UNK
  9. ONDANSETRON [Concomitant]
     Indication: PROPHYLAXIS
     Dosage: 8 MG, UNK
     Route: 042
     Dates: start: 20110714
  10. METOCLOPRAMIDE [Concomitant]
     Indication: PROPHYLAXIS
     Dosage: 10 MG, UNK
     Dates: start: 20110714
  11. PIPERACILLIN AND TAZOBACTAM [Concomitant]
     Dosage: UNK
     Dates: start: 20110712, end: 20110814
  12. POLYETHYLENE GLYCOL [Concomitant]
     Indication: HYPONATRAEMIA
  13. OXALIPLATIN [Concomitant]
     Indication: GASTRIC CANCER
     Dosage: UNK
     Dates: start: 20110714
  14. DEXAMETHASONE [Concomitant]
     Indication: PROPHYLAXIS
     Dosage: UNK MG, UNK
     Route: 042
     Dates: start: 20110714
  15. HYDROCORTISONE [Concomitant]
     Indication: PROPHYLAXIS
     Dosage: UNK
     Route: 061
     Dates: start: 20110714
  16. LOPERAMIDE [Concomitant]
     Dosage: 2 MG, PRN
     Route: 048

REACTIONS (7)
  - ABDOMINAL PAIN [None]
  - FATIGUE [None]
  - CELLULITIS [None]
  - DIARRHOEA [None]
  - INFECTION [None]
  - DECREASED APPETITE [None]
  - NAUSEA [None]
